FAERS Safety Report 16012665 (Version 1)
Quarter: 2019Q1

REPORT INFORMATION
  Report Type: Spontaneous
  Country: US (occurrence: US)
  Receive Date: 20190226
  Receipt Date: 20190226
  Transmission Date: 20190418
  Serious: Yes (Hospitalization)
  Sender: FDA-Public Use
  Company Number: None

PATIENT
  Age: 69 Year
  Sex: Female
  Weight: 72.57 kg

DRUGS (1)
  1. MULTIHANCE [Suspect]
     Active Substance: GADOBENATE DIMEGLUMINE

REACTIONS (5)
  - Eye swelling [None]
  - Blood pressure increased [None]
  - Throat irritation [None]
  - Cough [None]
  - Mouth swelling [None]

NARRATIVE: CASE EVENT DATE: 20190218
